FAERS Safety Report 17703353 (Version 1)
Quarter: 2020Q2

REPORT INFORMATION
  Report Type: Spontaneous
  Country: US (occurrence: US)
  Receive Date: 20200423
  Receipt Date: 20200423
  Transmission Date: 20200714
  Serious: No
  Sender: FDA-Public Use
  Company Number: None

PATIENT
  Age: 63 Year
  Sex: Female

DRUGS (1)
  1. ENHERTU [Suspect]
     Active Substance: FAM-TRASTUZUMAB DERUXTECAN-NXKI
     Indication: BREAST CANCER FEMALE
     Route: 042
     Dates: start: 20200102

REACTIONS (5)
  - Dry eye [None]
  - Alopecia [None]
  - Fatigue [None]
  - Decreased appetite [None]
  - Nephropathy [None]

NARRATIVE: CASE EVENT DATE: 202002
